FAERS Safety Report 4877788-9 (Version None)
Quarter: 2005Q4

REPORT INFORMATION
  Report Type: 
  Country: None (occurrence: None)
  Receive Date: 20051206
  Receipt Date: 20050906
  Transmission Date: 20060501
  Serious: No
  Sender: FDA-Public Use
  Company Number: USA0509107125

PATIENT
  Sex: Female

DRUGS (6)
  1. CYMBALTA [Suspect]
     Indication: NEURALGIA
     Dosage: 30 MG DAY
     Dates: start: 20050801, end: 20050803
  2. PROZAC [Suspect]
  3. DEXEDRINE [Concomitant]
  4. SYNTHROID [Concomitant]
  5. CYTOMEL [Concomitant]
  6. MIACALCIN [Concomitant]

REACTIONS (6)
  - ABDOMINAL DISCOMFORT [None]
  - ANXIETY [None]
  - DIARRHOEA [None]
  - DYSTONIA [None]
  - HYPERHIDROSIS [None]
  - MUSCLE TWITCHING [None]
